FAERS Safety Report 7158894-5 (Version None)
Quarter: 2010Q4

REPORT INFORMATION
  Report Type: 
  Country: None (occurrence: None)
  Receive Date: 20101214
  Receipt Date: 20100716
  Transmission Date: 20110411
  Serious: No
  Sender: FDA-Public Use
  Company Number: US-ASTRAZENECA-2010SE33471

PATIENT
  Age: 30223 Day
  Sex: Male
  Weight: 104.3 kg

DRUGS (6)
  1. CRESTOR [Suspect]
     Indication: HYPERCHOLESTEROLAEMIA
     Route: 048
     Dates: start: 20100401, end: 20100716
  2. VITAMINS [Concomitant]
     Indication: GENERAL PHYSICAL CONDITION
  3. BLOOD PRESSURE PILLS [Concomitant]
     Indication: HYPERTENSION
  4. MAXZIDE [Concomitant]
     Indication: CYSTITIS
  5. ZETIA [Concomitant]
     Indication: HYPERCHOLESTEROLAEMIA
  6. ASPIRIN [Concomitant]
     Indication: HYPERTENSION

REACTIONS (1)
  - BLOOD UREA INCREASED [None]
